FAERS Safety Report 6142818-3 (Version None)
Quarter: 2009Q2

REPORT INFORMATION
  Report Type: 
  Country: None (occurrence: None)
  Receive Date: 20090403
  Receipt Date: 20090327
  Transmission Date: 20091009
  Serious: Yes (Other)
  Sender: FDA-Public Use
  Company Number: US-AMGEN-QUU338145

PATIENT
  Sex: Male
  Weight: 132 kg

DRUGS (3)
  1. ENBREL [Suspect]
     Indication: PSORIASIS
     Route: 058
     Dates: start: 20031101, end: 20090101
  2. ENBREL [Suspect]
     Indication: PSORIATIC ARTHROPATHY
  3. ASPIRIN [Concomitant]

REACTIONS (1)
  - LYMPHOPENIA [None]
